FAERS Safety Report 7049097-3 (Version None)
Quarter: 2010Q4

REPORT INFORMATION
  Report Type: 
  Country: None (occurrence: None)
  Receive Date: 20101007
  Receipt Date: 20100927
  Transmission Date: 20110411
  Serious: Yes (Hospitalization, Other)
  Sender: FDA-Public Use
  Company Number: 017560

PATIENT
  Age: 40 Year
  Sex: Male

DRUGS (3)
  1. LACOSAMIDE [Suspect]
     Dosage: 200 MG
  2. DEPAKOTE [Suspect]
  3. PLAVIX [Suspect]

REACTIONS (2)
  - CEREBROVASCULAR ACCIDENT [None]
  - STEVENS-JOHNSON SYNDROME [None]
